FAERS Safety Report 17486239 (Version 2)
Quarter: 2020Q2

REPORT INFORMATION
  Report Type: Spontaneous
  Country: US (occurrence: US)
  Receive Date: 20200303
  Receipt Date: 20200629
  Transmission Date: 20200713
  Serious: Yes (Hospitalization, Other)
  Sender: FDA-Public Use
  Company Number: US-009507513-2002USA010716

PATIENT
  Age: 61 Year
  Sex: Female
  Weight: 47.17 kg

DRUGS (1)
  1. KEYTRUDA [Suspect]
     Active Substance: PEMBROLIZUMAB
     Indication: NON-SMALL CELL LUNG CANCER STAGE III
     Dosage: EVERY 3 WEEKS
     Route: 042
     Dates: start: 20190822, end: 20191205

REACTIONS (24)
  - Blood glucose decreased [Unknown]
  - Drug dependence [Unknown]
  - Blood potassium increased [Unknown]
  - Blood alkaline phosphatase increased [Unknown]
  - Granulocyte count increased [Unknown]
  - Rash vesicular [Recovering/Resolving]
  - Fatigue [Unknown]
  - Blood sodium decreased [Unknown]
  - Blood bilirubin increased [Unknown]
  - Jaundice [Not Recovered/Not Resolved]
  - Abnormal loss of weight [Unknown]
  - Peripheral swelling [Not Recovered/Not Resolved]
  - Glomerular filtration rate decreased [Unknown]
  - Rash [Unknown]
  - Rash [Recovered/Resolved]
  - White blood cell count increased [Unknown]
  - Pulmonary mass [Unknown]
  - Blood albumin decreased [Unknown]
  - Haemoglobin decreased [Unknown]
  - Aspartate aminotransferase increased [Unknown]
  - Carcinoembryonic antigen increased [Unknown]
  - Neck pain [Unknown]
  - Blood creatine increased [Unknown]
  - Alanine aminotransferase increased [Unknown]

NARRATIVE: CASE EVENT DATE: 201911
